FAERS Safety Report 10272987 (Version 1)
Quarter: 2014Q2

REPORT INFORMATION
  Report Type: Spontaneous
  Country: GR (occurrence: None)
  Receive Date: 20140630
  Receipt Date: 20140630
  Transmission Date: 20141212
  Serious: Yes (Life-Threatening, Hospitalization)
  Sender: FDA-Public Use
  Company Number: FK201402483

PATIENT
  Age: 63 Year
  Sex: Male
  Weight: 75 kg

DRUGS (4)
  1. PROPOFOL [Suspect]
     Indication: INDUCTION AND MAINTENANCE OF ANAESTHESIA
     Route: 042
     Dates: start: 20140614, end: 20140614
  2. MIDAZOLAM (MIDAZOLAM) [Concomitant]
  3. BUSCOPAN (HYOSCINE BUTYLBROMIDE) (HYOSCINE BUTYLBROMIDE) [Concomitant]
  4. FLUMAZENIL KABI (FLUMAZENIL) [Concomitant]

REACTIONS (10)
  - Hypotension [None]
  - Asthenia [None]
  - Tremor [None]
  - Convulsion [None]
  - Pyrexia [None]
  - Leukopenia [None]
  - Thrombocytopenia [None]
  - Anaemia [None]
  - Renal impairment [None]
  - Rhabdomyolysis [None]
